FAERS Safety Report 18217232 (Version 1)
Quarter: 2020Q3

REPORT INFORMATION
  Report Type: Spontaneous
  Country: FR (occurrence: FR)
  Receive Date: 20200901
  Receipt Date: 20200901
  Transmission Date: 20201103
  Serious: Yes (Other)
  Sender: FDA-Public Use
  Company Number: FR-TEVA-2020-FR-1821557

PATIENT
  Age: 72 Year
  Sex: Male
  Weight: 69 kg

DRUGS (12)
  1. PARIET 20 MG, COMPRIME GASTRO?RESISTANT [Concomitant]
     Active Substance: RABEPRAZOLE SODIUM
  2. PARACETAMOL [Concomitant]
     Active Substance: ACETAMINOPHEN
  3. BACTRIM [Concomitant]
     Active Substance: SULFAMETHOXAZOLE\TRIMETHOPRIM
  4. IPRATROPIUM BROMIDE\FENOTEROL HYDROBROMIDE [Concomitant]
     Active Substance: FENOTEROL HYDROBROMIDE\IPRATROPIUM BROMIDE
  5. TARKA LP, GELULE A LIBERATION PROLONGEE [Concomitant]
  6. SERETIDE [Concomitant]
     Active Substance: FLUTICASONE PROPIONATE\SALMETEROL XINAFOATE
  7. FLUOROURACILE TEVA [Suspect]
     Active Substance: FLUOROURACIL
     Indication: OESOPHAGEAL CANCER METASTATIC
     Dosage: 4300MG OVER 48 HOURS
     Route: 041
     Dates: start: 20200415, end: 20200608
  8. PLAVIX [Concomitant]
     Active Substance: CLOPIDOGREL BISULFATE
  9. ZYLORIC 200 MG, COMPRIME [Concomitant]
     Active Substance: ALLOPURINOL
  10. HIZENTRA 200 MG/ML, SOLUTION INJECTABLE SOUS?CUTANEE [Concomitant]
     Route: 058
  11. XYZALL 5 MG, COMPRIME PELLICULE [Concomitant]
  12. OXALIPLATINE ACCORD [Concomitant]
     Active Substance: OXALIPLATIN

REACTIONS (2)
  - Chest pain [Recovered/Resolved with Sequelae]
  - Acute coronary syndrome [Recovered/Resolved with Sequelae]

NARRATIVE: CASE EVENT DATE: 20200511
